FAERS Safety Report 24813056 (Version 2)
Quarter: 2025Q1

REPORT INFORMATION
  Report Type: Spontaneous
  Country: UA (occurrence: UA)
  Receive Date: 20250107
  Receipt Date: 20250308
  Transmission Date: 20250409
  Serious: Yes (Death)
  Sender: ROCHE
  Company Number: UA-ROCHE-10000172194

PATIENT
  Age: 33 Year
  Sex: Male

DRUGS (4)
  1. HEMLIBRA [Suspect]
     Active Substance: EMICIZUMAB-KXWH
     Indication: Factor VIII deficiency
     Route: 065
  2. HEMLIBRA [Suspect]
     Active Substance: EMICIZUMAB-KXWH
     Indication: Factor VIII deficiency
  3. FEIBA [Concomitant]
     Active Substance: ANTI-INHIBITOR COAGULANT COMPLEX
  4. octane [Concomitant]

REACTIONS (1)
  - Myocardial infarction [Fatal]
